FAERS Safety Report 21486040 (Version 1)
Quarter: 2022Q4

REPORT INFORMATION
  Report Type: Spontaneous
  Country: US (occurrence: US)
  Receive Date: 20221020
  Receipt Date: 20221020
  Transmission Date: 20230112
  Serious: Yes (Hospitalization)
  Sender: FDA-Public Use
  Company Number: US-MYLANLABS-2022M1115987

PATIENT
  Age: 3 Decade
  Sex: Female

DRUGS (2)
  1. FENTANYL [Suspect]
     Active Substance: FENTANYL
     Indication: Product used for unknown indication
     Dosage: UNK
     Route: 042
  2. KETAMINE [Suspect]
     Active Substance: KETAMINE
     Indication: Product used for unknown indication
     Dosage: UNK
     Route: 042

REACTIONS (7)
  - Endocarditis [Unknown]
  - Respiratory distress [Recovering/Resolving]
  - Acute respiratory failure [Recovering/Resolving]
  - Cardiac failure [Recovered/Resolved]
  - Pulmonary oedema [Recovering/Resolving]
  - Drug withdrawal syndrome [Recovering/Resolving]
  - Stress cardiomyopathy [Recovered/Resolved]
